FAERS Safety Report 5468020-6 (Version None)
Quarter: 2007Q3

REPORT INFORMATION
  Report Type: 
  Country: None (occurrence: None)
  Receive Date: 20070926
  Receipt Date: 20070920
  Transmission Date: 20080115
  Serious: Yes (Death, Disabling)
  Sender: FDA-Public Use
  Company Number: US-ASTRAZENECA-2006UW21578

PATIENT
  Sex: Male

DRUGS (1)
  1. SEROQUEL [Suspect]
     Indication: POST-TRAUMATIC STRESS DISORDER
     Route: 048

REACTIONS (5)
  - DIABETES MELLITUS [None]
  - GASTROENTERITIS [None]
  - HEPATITIS C [None]
  - RENAL FAILURE [None]
  - SEPTIC SHOCK [None]
